FAERS Safety Report 7000412-6 (Version None)
Quarter: 2010Q3

REPORT INFORMATION
  Report Type: 
  Country: None (occurrence: None)
  Receive Date: 20100920
  Receipt Date: 20100317
  Transmission Date: 20110219
  Serious: No
  Sender: FDA-Public Use
  Company Number: US-ASTRAZENECA-2010SE11665

PATIENT
  Age: 58 Year
  Sex: Female
  Weight: 65.8 kg

DRUGS (5)
  1. SEROQUEL [Suspect]
     Indication: BIPOLAR DISORDER
     Route: 048
     Dates: start: 20070101, end: 20100224
  2. PRAVASTATIN [Concomitant]
  3. ASPIRIN [Concomitant]
  4. LEVOTHYROXINE [Concomitant]
  5. AMITRIPTYLINE [Concomitant]

REACTIONS (2)
  - FEELING JITTERY [None]
  - TREMOR [None]
